FAERS Safety Report 5663642-1 (Version None)
Quarter: 2008Q1

REPORT INFORMATION
  Report Type: 
  Country: None (occurrence: None)
  Receive Date: 20080307
  Receipt Date: 20080226
  Transmission Date: 20080703
  Serious: Yes (Hospitalization)
  Sender: FDA-Public Use
  Company Number: GB-DEXPHARM-20080149

PATIENT
  Age: 58 Year
  Sex: Male

DRUGS (5)
  1. DICLOFENAC 50 MG [Suspect]
     Indication: PAIN
     Dosage: 50 MG MILLGRAM (S)
     Route: 048
     Dates: start: 20071201, end: 20080204
  2. CO-DANTHRAMER (DANTHRON,POLOXAMER) [Concomitant]
  3. IPRATROPIUM BROMIDE [Concomitant]
  4. METOCLOPRAMIDE [Concomitant]
  5. MSI (CONTINUOUS MORPHINE) [Concomitant]

REACTIONS (4)
  - DUODENAL ULCER [None]
  - HAEMATEMESIS [None]
  - HAEMOGLOBIN DECREASED [None]
  - HELICOBACTER INFECTION [None]
